FAERS Safety Report 12225532 (Version 2)
Quarter: 2016Q2

REPORT INFORMATION
  Report Type: Spontaneous
  Country: PE (occurrence: PE)
  Receive Date: 20160331
  Receipt Date: 20160429
  Transmission Date: 20160815
  Serious: No
  Sender: FDA-Public Use
  Company Number: PE-PFIZER INC-2016168611

PATIENT
  Age: 70 Year
  Sex: Male

DRUGS (1)
  1. CARDURA XL [Suspect]
     Active Substance: DOXAZOSIN MESYLATE
     Indication: BENIGN PROSTATIC HYPERPLASIA
     Dosage: 4 MG, DAILY
     Route: 048
     Dates: start: 201603

REACTIONS (1)
  - Somnolence [Not Recovered/Not Resolved]

NARRATIVE: CASE EVENT DATE: 201603
